FAERS Safety Report 10910606 (Version 1)
Quarter: 2015Q1

REPORT INFORMATION
  Report Type: Spontaneous
  Country: US (occurrence: US)
  Receive Date: 20150312
  Receipt Date: 20150312
  Transmission Date: 20150721
  Serious: No
  Sender: FDA-Public Use
  Company Number: US-SA-2015SA002618

PATIENT
  Age: 75 Year
  Sex: Female

DRUGS (5)
  1. LISINOPRIL. [Concomitant]
     Active Substance: LISINOPRIL
  2. PREVACID [Concomitant]
     Active Substance: LANSOPRAZOLE
  3. NASACORT ALLERGY 24HR [Suspect]
     Active Substance: TRIAMCINOLONE ACETONIDE
     Indication: HYPERSENSITIVITY
     Dosage: START DATE: ONE WEEK AGO?DOSE: 2 SPRAYS/NARE
     Route: 065
  4. ESTRADIOL. [Concomitant]
     Active Substance: ESTRADIOL
  5. AFRIN [Concomitant]
     Active Substance: OXYMETAZOLINE
     Indication: MULTIPLE ALLERGIES
     Dosage: FREQUENCY: SEVERAL TIMES A DAY FOR SEVERAL YEARS
     Route: 045

REACTIONS (8)
  - Head injury [Unknown]
  - Nervousness [Unknown]
  - Fall [Unknown]
  - Palpitations [Unknown]
  - Dyspnoea [Recovering/Resolving]
  - Epistaxis [Unknown]
  - Headache [Unknown]
  - Fear [Unknown]
